FAERS Safety Report 19128998 (Version 1)
Quarter: 2021Q2

REPORT INFORMATION
  Report Type: Spontaneous
  Country: US (occurrence: US)
  Receive Date: 20210413
  Receipt Date: 20210413
  Transmission Date: 20210717
  Serious: No
  Sender: FDA-Public Use
  Company Number: US-EMERGENT BIOSOLUTIONS,-21000037SP

PATIENT
  Sex: Female

DRUGS (1)
  1. NARCAN [Suspect]
     Active Substance: NALOXONE HYDROCHLORIDE
     Indication: OVERDOSE
     Dosage: 4 MILLIGRAM
     Route: 045

REACTIONS (4)
  - Feeling jittery [Recovered/Resolved]
  - Nasopharyngitis [Recovered/Resolved]
  - Yawning [Recovered/Resolved]
  - Feeling abnormal [Recovered/Resolved]
